FAERS Safety Report 20151523 (Version 1)
Quarter: 2021Q4

REPORT INFORMATION
  Report Type: Spontaneous
  Country: US (occurrence: None)
  Receive Date: 20211203
  Receipt Date: 20211203
  Transmission Date: 20220303
  Serious: No
  Sender: FDA-Public Use
  Company Number: None

PATIENT
  Sex: Female

DRUGS (1)
  1. STELARA [Suspect]
     Active Substance: USTEKINUMAB
     Indication: Crohn^s disease
     Dosage: OTHER FREQUENCY : EVERY 8 WKS W/ INJ;?
     Route: 042

REACTIONS (4)
  - Cough [None]
  - Dyspnoea [None]
  - Flushing [None]
  - Loss of consciousness [None]

NARRATIVE: CASE EVENT DATE: 20211109
